FAERS Safety Report 17747887 (Version 2)
Quarter: 2020Q2

REPORT INFORMATION
  Report Type: Report from Study
  Country: GB (occurrence: GB)
  Receive Date: 20200505
  Receipt Date: 20200515
  Transmission Date: 20200714
  Serious: Yes (Other)
  Sender: FDA-Public Use
  Company Number: NVSC2020GB120206

PATIENT
  Age: 80 Year
  Sex: Male
  Weight: 112.3 kg

DRUGS (24)
  1. TAMLOSIN [Concomitant]
     Indication: ERECTILE DYSFUNCTION
     Dosage: 400 MG, ONCE DAILY
     Route: 048
     Dates: start: 20030315
  2. COMPARATOR BENDAMUSTINE [Suspect]
     Active Substance: BENDAMUSTINE
     Indication: CHRONIC LYMPHOCYTIC LEUKAEMIA
     Dosage: 308 MG
     Route: 042
     Dates: start: 20150212, end: 20150213
  3. OFATUMUMAB [Suspect]
     Active Substance: OFATUMUMAB
     Indication: CHRONIC LYMPHOCYTIC LEUKAEMIA
     Dosage: 1300 MG
     Route: 042
     Dates: start: 20150212, end: 20150212
  4. HYDROCORTISONE. [Concomitant]
     Active Substance: HYDROCORTISONE
     Indication: CHRONIC LYMPHOCYTIC LEUKAEMIA
     Dosage: 100 MG
     Route: 042
     Dates: start: 20150212, end: 20150212
  5. METOCLOPRAMIDE. [Concomitant]
     Active Substance: METOCLOPRAMIDE
     Indication: CHRONIC LYMPHOCYTIC LEUKAEMIA
     Dosage: 10 MG
     Route: 048
     Dates: start: 20150212, end: 20150219
  6. IBUPROFEN. [Concomitant]
     Active Substance: IBUPROFEN
     Indication: MIGRAINE
     Dosage: 400 MG, STAT
     Route: 048
     Dates: start: 20150224, end: 20150224
  7. METOPROLOL. [Concomitant]
     Active Substance: METOPROLOL
     Indication: ATRIAL FIBRILLATION
     Dosage: 25 MG, BID
     Route: 048
     Dates: start: 20150224, end: 20150224
  8. PARACETAMOL [Concomitant]
     Active Substance: ACETAMINOPHEN
     Indication: NEUTROPENIC SEPSIS
     Dosage: 1000 MG, ONCE DAILY
     Route: 048
     Dates: start: 20150221, end: 20150221
  9. COTRIMOXAZOLE [Concomitant]
     Active Substance: SULFAMETHOXAZOLE\TRIMETHOPRIM
     Indication: PRODUCT USED FOR UNKNOWN INDICATION
     Route: 065
  10. LANSOPRAZOLE. [Concomitant]
     Active Substance: LANSOPRAZOLE
     Indication: PROPHYLAXIS AGAINST GASTROINTESTINAL ULCER
     Dosage: 15 MG, ONCE DAILY
     Route: 048
     Dates: start: 20150220, end: 20150223
  11. VANCOMYCIN [Concomitant]
     Active Substance: VANCOMYCIN
     Indication: INFECTION
     Dosage: 125 MG, QID
     Route: 048
     Dates: start: 20150224, end: 20150227
  12. RANITIDINE. [Concomitant]
     Active Substance: RANITIDINE
     Indication: PROPHYLAXIS AGAINST GASTROINTESTINAL ULCER
     Dosage: 150 MG, ONCE DAILY
     Route: 048
     Dates: start: 20150223, end: 20150223
  13. IDELALISIB [Suspect]
     Active Substance: IDELALISIB
     Indication: CHRONIC LYMPHOCYTIC LEUKAEMIA
     Dosage: UNK
     Route: 048
     Dates: start: 20150212, end: 20150219
  14. ALLOPURINOL. [Concomitant]
     Active Substance: ALLOPURINOL
     Indication: CHRONIC LYMPHOCYTIC LEUKAEMIA
     Dosage: 300 MG
     Route: 048
     Dates: start: 20150212, end: 20150219
  15. ATORVASTATIN [Concomitant]
     Active Substance: ATORVASTATIN
     Indication: HYPERLIPIDAEMIA
     Dosage: 10 MG, ONCE DAILY
     Route: 048
     Dates: start: 20130815, end: 20150221
  16. ACICLOVIR [Concomitant]
     Active Substance: ACYCLOVIR
     Indication: CHRONIC LYMPHOCYTIC LEUKAEMIA
     Dosage: 400 MG
     Route: 048
     Dates: start: 20150212, end: 20150219
  17. G-CSF [Concomitant]
     Active Substance: GRANULOCYTE COLONY-STIMULATING FACTOR NOS
     Indication: PRODUCT USED FOR UNKNOWN INDICATION
     Route: 065
  18. NACL [Concomitant]
     Active Substance: SODIUM CHLORIDE
     Dosage: 1000 ML, STAT
     Route: 042
     Dates: start: 20150221, end: 20150221
  19. CHLORPHENIRAMINE. [Concomitant]
     Active Substance: CHLORPHENIRAMINE
     Indication: CHRONIC LYMPHOCYTIC LEUKAEMIA
     Dosage: 10 MG
     Route: 042
     Dates: start: 20150212, end: 20150212
  20. FINASTERIDE. [Concomitant]
     Active Substance: FINASTERIDE
     Indication: BENIGN PROSTATIC HYPERPLASIA
     Dosage: 5 MG, ONCE DAILY
     Route: 048
     Dates: start: 20060315
  21. NACL [Concomitant]
     Active Substance: SODIUM CHLORIDE
     Indication: RENAL IMPAIRMENT
     Dosage: 500 ML, STAT
     Route: 042
     Dates: start: 20150221, end: 20150221
  22. PARACETAMOL [Concomitant]
     Active Substance: ACETAMINOPHEN
     Indication: CHRONIC LYMPHOCYTIC LEUKAEMIA
     Dosage: 1000 MG
     Route: 048
     Dates: start: 20150212, end: 20150212
  23. NOREPINEPHRINE. [Concomitant]
     Active Substance: NOREPINEPHRINE
     Indication: HYPOTENSION
     Dosage: 4 MG, STAT
     Route: 042
     Dates: start: 20150225, end: 20150225
  24. METOPROLOL. [Concomitant]
     Active Substance: METOPROLOL
     Dosage: 5 MG, STAT
     Route: 042
     Dates: start: 20150221, end: 20150221

REACTIONS (2)
  - Second primary malignancy [Not Recovered/Not Resolved]
  - Burkitt^s lymphoma [Not Recovered/Not Resolved]

NARRATIVE: CASE EVENT DATE: 20200213
